FAERS Safety Report 5141745-8 (Version None)
Quarter: 2006Q4

REPORT INFORMATION
  Report Type: 
  Country: None (occurrence: None)
  Receive Date: 20061027
  Receipt Date: 20061010
  Transmission Date: 20070319
  Serious: Yes (Hospitalization)
  Sender: FDA-Public Use
  Company Number: FR200610001989

PATIENT

DRUGS (1)
  1. SOMATROPIN (SOMATROPIN) VIAL [Suspect]
     Dosage: SUBCUTANEOUS
     Route: 058
     Dates: start: 20040113

REACTIONS (1)
  - DEPRESSION [None]
